FAERS Safety Report 4450203-5 (Version None)
Quarter: 2004Q3

REPORT INFORMATION
  Report Type: 
  Country: None (occurrence: None)
  Receive Date: 20040914
  Receipt Date: 20040830
  Transmission Date: 20050211
  Serious: Yes (Hospitalization)
  Sender: FDA-Public Use
  Company Number: S04-FRA-03263-01

PATIENT
  Age: 80 Year
  Sex: Female
  Weight: 53 kg

DRUGS (10)
  1. CITALOPRAM HYDROBROMIDE [Suspect]
     Indication: DEPRESSION
     Dosage: 20 MG QD PO
     Route: 048
     Dates: start: 20030501
  2. ATORVASTATIN CALCIUM [Concomitant]
  3. VASTAREL (TRIMETAZIDINE) (TRIMETAZIDINE) [Concomitant]
  4. DAFLON (DIOSMIN) [Concomitant]
  5. ASPIRIN [Concomitant]
  6. TENORMIN [Concomitant]
  7. FERROUS SULFATE TAB [Concomitant]
  8. PLAVIX [Concomitant]
  9. OMEPRAZOLE [Concomitant]
  10. DIAFUSOR (GLYCERYL TRINITRATE) [Concomitant]

REACTIONS (2)
  - AMNESIA [None]
  - SYNCOPE [None]
